FAERS Safety Report 18855676 (Version 2)
Quarter: 2021Q2

REPORT INFORMATION
  Report Type: Spontaneous
  Country: US (occurrence: US)
  Receive Date: 20210205
  Receipt Date: 20210408
  Transmission Date: 20210717
  Serious: Yes (Other)
  Sender: FDA-Public Use
  Company Number: US-ALLERGAN-2101115US

PATIENT
  Sex: Female

DRUGS (2)
  1. REFRESH RELIEVA PRESERVATIVE FREE [Suspect]
     Active Substance: CARBOXYMETHYLCELLULOSE SODIUM\GLYCERIN
     Indication: DRY EYE
     Dosage: 1?2 GTTS, BID
     Route: 047
     Dates: start: 202006
  2. REFRESH RELIEVA PRESERVATIVE FREE [Suspect]
     Active Substance: CARBOXYMETHYLCELLULOSE SODIUM\GLYCERIN
     Indication: DRY EYE
     Dosage: 1?2 GTTS, BID
     Route: 047

REACTIONS (6)
  - Eyelids pruritus [Not Recovered/Not Resolved]
  - Suspected product quality issue [Unknown]
  - Suspected transmission of an infectious agent via product [Unknown]
  - Eye irritation [Not Recovered/Not Resolved]
  - Ocular discomfort [Not Recovered/Not Resolved]
  - Eye pain [Not Recovered/Not Resolved]
